FAERS Safety Report 9548352 (Version 1)
Quarter: 2013Q3

REPORT INFORMATION
  Report Type: Spontaneous
  Country: US (occurrence: None)
  Receive Date: 20130705
  Receipt Date: 20130705
  Transmission Date: 20140515
  Serious: Yes (Life-Threatening, Hospitalization, Other)
  Sender: FDA-Public Use
  Company Number: RB-51175-2013

PATIENT
  Age: 11 Month
  Sex: Male

DRUGS (1)
  1. SUBOXONE 8 MG [Suspect]
     Indication: ACCIDENTAL OVERDOSE
     Dates: start: 201302, end: 201302

REACTIONS (4)
  - Accidental exposure to product [None]
  - Vomiting [None]
  - Respiratory depression [None]
  - Sedation [None]
